FAERS Safety Report 7449225-1 (Version None)
Quarter: 2011Q2

REPORT INFORMATION
  Report Type: 
  Country: None (occurrence: None)
  Receive Date: 20110502
  Receipt Date: 20110422
  Transmission Date: 20111010
  Serious: Yes (Hospitalization)
  Sender: FDA-Public Use
  Company Number: US-BIOGENIDEC-2011BI015209

PATIENT
  Age: 57 Year
  Sex: Male

DRUGS (1)
  1. AVONEX [Suspect]
     Indication: MULTIPLE SCLEROSIS
     Route: 030
     Dates: start: 20031121

REACTIONS (6)
  - MYALGIA [None]
  - TONSILLAR NEOPLASM [None]
  - OESOPHAGEAL CARCINOMA [None]
  - DIZZINESS [None]
  - PAIN [None]
  - TOOTH EXTRACTION [None]
